FAERS Safety Report 7031676-0 (Version None)
Quarter: 2010Q4

REPORT INFORMATION
  Report Type: 
  Country: None (occurrence: None)
  Receive Date: 20101004
  Receipt Date: 20100921
  Transmission Date: 20110411
  Serious: Yes (Death)
  Sender: FDA-Public Use
  Company Number: 2010SP012380

PATIENT
  Age: 54 Year
  Sex: Male

DRUGS (11)
  1. CLARITIN REDITABS [Suspect]
     Indication: RHINITIS ALLERGIC
     Dosage: 10 MG;PO
     Route: 048
     Dates: start: 20090327, end: 20090524
  2. PIRFENIDONE [Suspect]
     Indication: IDIOPATHIC PULMONARY FIBROSIS
     Dosage: 200 MG;TID;PO ; 400 MG;TID;PO ; 600 MG;TID;PO ; 400 MG;TID;PO
     Route: 048
     Dates: start: 20090427, end: 20090510
  3. PIRFENIDONE [Suspect]
     Indication: IDIOPATHIC PULMONARY FIBROSIS
     Dosage: 200 MG;TID;PO ; 400 MG;TID;PO ; 600 MG;TID;PO ; 400 MG;TID;PO
     Route: 048
     Dates: start: 20090511, end: 20090524
  4. PIRFENIDONE [Suspect]
     Indication: IDIOPATHIC PULMONARY FIBROSIS
     Dosage: 200 MG;TID;PO ; 400 MG;TID;PO ; 600 MG;TID;PO ; 400 MG;TID;PO
     Route: 048
     Dates: start: 20090525, end: 20090726
  5. PIRFENIDONE [Suspect]
     Indication: IDIOPATHIC PULMONARY FIBROSIS
     Dosage: 200 MG;TID;PO ; 400 MG;TID;PO ; 600 MG;TID;PO ; 400 MG;TID;PO
     Route: 048
     Dates: start: 20090727, end: 20091218
  6. MUCOSTA [Concomitant]
  7. OMEPRAL [Concomitant]
  8. BACTRIM [Concomitant]
  9. AMOBAN [Concomitant]
  10. FRAGMIN [Concomitant]
  11. GANCICLOVIR SODIUM [Concomitant]

REACTIONS (2)
  - DISEASE PROGRESSION [None]
  - IDIOPATHIC PULMONARY FIBROSIS [None]
